FAERS Safety Report 13784723 (Version 1)
Quarter: 2017Q3

REPORT INFORMATION
  Report Type: Spontaneous
  Country: US (occurrence: US)
  Receive Date: 20170724
  Receipt Date: 20170724
  Transmission Date: 20171127
  Serious: No
  Sender: FDA-Public Use
  Company Number: US-IMPAX LABORATORIES, INC-2017-IPXL-01497

PATIENT
  Sex: Female
  Weight: 78 kg

DRUGS (3)
  1. RYTARY [Suspect]
     Active Substance: CARBIDOPA\LEVODOPA
     Indication: PARKINSON^S DISEASE
     Dosage: 48.75/195MG, 4 CAPSULE, 3 TIMES DAILY
     Route: 048
     Dates: start: 20170410, end: 20170501
  2. CLONAZEPAM. [Concomitant]
     Active Substance: CLONAZEPAM
     Indication: NERVE INJURY
     Dosage: UNK
     Route: 065
  3. CARBIDOPA LEVODOPA [Concomitant]
     Active Substance: CARBIDOPA\LEVODOPA
     Indication: PARKINSON^S DISEASE
     Dosage: 25/100 MG, UNK
     Route: 065

REACTIONS (5)
  - Dizziness [Recovering/Resolving]
  - Muscle spasms [Recovered/Resolved]
  - Feeling abnormal [Recovered/Resolved]
  - Fall [Recovered/Resolved]
  - Drug ineffective [Unknown]
